FAERS Safety Report 17225065 (Version 1)
Quarter: 2020Q1

REPORT INFORMATION
  Report Type: Spontaneous
  Country: US (occurrence: US)
  Receive Date: 20200102
  Receipt Date: 20200102
  Transmission Date: 20200409
  Serious: No
  Sender: FDA-Public Use
  Company Number: US-ELI_LILLY_AND_COMPANY-US201912001725

PATIENT
  Age: 49 Year
  Sex: Male

DRUGS (2)
  1. GALCANEZUMAB 100MG [Suspect]
     Active Substance: GALCANEZUMAB
     Indication: CLUSTER HEADACHE
     Dosage: 100 MG, UNKNOWN
     Route: 058
  2. SUMATRIPTAN. [Concomitant]
     Active Substance: SUMATRIPTAN
     Indication: CLUSTER HEADACHE
     Dosage: UNK UNK, UNKNOWN

REACTIONS (3)
  - Cluster headache [Not Recovered/Not Resolved]
  - Sleep deficit [Not Recovered/Not Resolved]
  - Therapeutic response decreased [Not Recovered/Not Resolved]

NARRATIVE: CASE EVENT DATE: 2019
